FAERS Safety Report 14383424 (Version 4)
Quarter: 2018Q2

REPORT INFORMATION
  Report Type: Spontaneous
  Country: US (occurrence: US)
  Receive Date: 20180115
  Receipt Date: 20180525
  Transmission Date: 20180711
  Serious: No
  Sender: FDA-Public Use
  Company Number: US-ASTRAZENECA-2018SE04185

PATIENT
  Sex: Female
  Weight: 37.6 kg

DRUGS (4)
  1. ACEBUTOLOL [Concomitant]
     Active Substance: ACEBUTOLOL
     Indication: LUNG INFECTION
  2. TUDORZA PRESSAIR [Suspect]
     Active Substance: ACLIDINIUM BROMIDE
     Indication: CHRONIC OBSTRUCTIVE PULMONARY DISEASE
     Route: 055
  3. AZITHROMYCIN ANHYDROUS. [Concomitant]
     Active Substance: AZITHROMYCIN ANHYDROUS
     Indication: LUNG INFECTION
  4. RIFAMPIN. [Concomitant]
     Active Substance: RIFAMPIN
     Indication: LUNG INFECTION

REACTIONS (10)
  - Memory impairment [Unknown]
  - Product quality issue [Unknown]
  - Dyspnoea [Unknown]
  - Chromaturia [Unknown]
  - Intentional product misuse [Unknown]
  - Lung infection [Unknown]
  - Body height decreased [Unknown]
  - Speech disorder [Unknown]
  - Tooth loss [Unknown]
  - Dermatitis [Unknown]
